FAERS Safety Report 6554417-X (Version None)
Quarter: 2010Q1

REPORT INFORMATION
  Report Type: 
  Country: None (occurrence: None)
  Receive Date: 20100127
  Receipt Date: 20100122
  Transmission Date: 20100710
  Serious: Yes (Hospitalization)
  Sender: FDA-Public Use
  Company Number: IT-ROXANE LABORATORIES, INC.-2010-RO-00087RO

PATIENT
  Age: 65 Year
  Sex: Female

DRUGS (22)
  1. LEVETIRACETAM [Suspect]
     Indication: EPILEPSY
     Dosage: 1500 MG
  2. DEXAMETHASONE [Suspect]
     Indication: MENINGIOMA
     Dosage: 40 MG
     Route: 042
  3. CLARITHROMYCIN [Suspect]
     Indication: BRONCHOPNEUMONIA
     Dosage: 1000 MG
  4. PAROXETINE HCL [Suspect]
     Indication: DEPRESSION
     Dosage: 10 MG
  5. MANNITOL [Suspect]
     Indication: MENINGIOMA
     Route: 042
  6. CEFAZOLIN [Suspect]
     Indication: MENINGIOMA
     Dosage: 2 G
     Route: 042
  7. ENOXAPARIN SODIUM [Suspect]
     Indication: MENINGIOMA
     Dosage: 4000 U
     Route: 058
  8. AMIKACIN [Suspect]
     Indication: BRONCHOPNEUMONIA
     Dosage: 1000 MG
  9. CEFTRIAXONE [Suspect]
     Indication: BRONCHOPNEUMONIA
     Dosage: 2 G
  10. CONCENTRATED RBC [Concomitant]
     Indication: PANCYTOPENIA
  11. VANCOMYCIN [Concomitant]
     Indication: PSEUDOMONAS INFECTION
  12. VANCOMYCIN [Concomitant]
     Indication: ENTEROCOCCAL INFECTION
  13. VANCOMYCIN [Concomitant]
     Indication: STAPHYLOCOCCAL INFECTION
  14. METRONIDAZOLE [Concomitant]
     Indication: PSEUDOMONAS INFECTION
  15. METRONIDAZOLE [Concomitant]
     Indication: ENTEROCOCCAL INFECTION
  16. METRONIDAZOLE [Concomitant]
     Indication: STAPHYLOCOCCAL INFECTION
  17. CIPROFLOXACIN [Concomitant]
     Indication: PSEUDOMONAS INFECTION
  18. CIPROFLOXACIN [Concomitant]
     Indication: ENTEROCOCCAL INFECTION
  19. CIPROFLOXACIN [Concomitant]
     Indication: STAPHYLOCOCCAL INFECTION
  20. MEROPENEM [Concomitant]
     Indication: PSEUDOMONAS INFECTION
  21. MEROPENEM [Concomitant]
     Indication: ENTEROCOCCAL INFECTION
  22. MEROPENEM [Concomitant]
     Indication: STAPHYLOCOCCAL INFECTION

REACTIONS (10)
  - BILE DUCT STONE [None]
  - BONE MARROW FAILURE [None]
  - BRONCHOPNEUMONIA [None]
  - CHOLANGITIS [None]
  - CHOLELITHIASIS [None]
  - ENTEROCOCCAL INFECTION [None]
  - LIVER ABSCESS [None]
  - PANCYTOPENIA [None]
  - PSEUDOMONAS INFECTION [None]
  - STAPHYLOCOCCAL INFECTION [None]
